FAERS Safety Report 5336268-7 (Version None)
Quarter: 2007Q2

REPORT INFORMATION
  Report Type: 
  Country: None (occurrence: None)
  Receive Date: 20070315
  Receipt Date: 20061122
  Transmission Date: 20071010
  Serious: No
  Sender: FDA-Public Use
  Company Number: BDI-008889

PATIENT
  Age: 45 Year
  Sex: Female
  Weight: 131.8 kg

DRUGS (2)
  1. MULTIHANCE [Suspect]
     Indication: NUCLEAR MAGNETIC RESONANCE IMAGING BRAIN
     Dosage: 20 ML ONCE IV
     Route: 042
     Dates: start: 20061121, end: 20061121
  2. MULTIHANCE [Suspect]
     Indication: VERTIGO
     Dosage: 20 ML ONCE IV
     Route: 042
     Dates: start: 20061121, end: 20061121

REACTIONS (2)
  - COUGH [None]
  - VOMITING [None]
